FAERS Safety Report 24258295 (Version 1)
Quarter: 2024Q3

REPORT INFORMATION
  Report Type: Spontaneous
  Country: CN (occurrence: CN)
  Receive Date: 20240828
  Receipt Date: 20240828
  Transmission Date: 20241017
  Serious: Yes (Other)
  Sender: PFIZER
  Company Number: CN-PFIZER INC-PV202400109917

PATIENT
  Age: 55 Year
  Sex: Male

DRUGS (1)
  1. METHYLPREDNISOLONE [Suspect]
     Active Substance: METHYLPREDNISOLONE
     Indication: Acute febrile neutrophilic dermatosis
     Dosage: 24 MG, DAILY
     Route: 048

REACTIONS (3)
  - Drug dependence [Unknown]
  - Off label use [Unknown]
  - Drug effective for unapproved indication [Unknown]
